FAERS Safety Report 13461319 (Version 1)
Quarter: 2017Q2

REPORT INFORMATION
  Report Type: Spontaneous
  Country: US (occurrence: US)
  Receive Date: 20170420
  Receipt Date: 20170420
  Transmission Date: 20170830
  Serious: No
  Sender: FDA-Public Use
  Company Number: US-ZYDUS-013161

PATIENT
  Sex: Female

DRUGS (5)
  1. ALPRAZOLAM. [Concomitant]
     Active Substance: ALPRAZOLAM
  2. MINOCYCLINE [Suspect]
     Active Substance: MINOCYCLINE\MINOCYCLINE HYDROCHLORIDE
     Indication: PRODUCT USED FOR UNKNOWN INDICATION
     Route: 065
  3. SIMVASTATIN/EZETIMIBE [Concomitant]
  4. NIFEDIPINE. [Concomitant]
     Active Substance: NIFEDIPINE
  5. PARACETAMOL/HYDROCODONE BITARTRATE [Concomitant]

REACTIONS (3)
  - Drug hypersensitivity [Unknown]
  - Post procedural complication [None]
  - Pigmentation disorder [None]
